FAERS Safety Report 19721937 (Version 1)
Quarter: 2021Q3

REPORT INFORMATION
  Report Type: Other
  Country: CH (occurrence: CH)
  Receive Date: 20210819
  Receipt Date: 20210819
  Transmission Date: 20211014
  Serious: Yes (Hospitalization)
  Sender: FDA-Public Use
  Company Number: CH-COLLEGIUM PHARMACEUTICAL, INC.-2021CGM00956

PATIENT
  Age: 75 Year
  Sex: Male

DRUGS (6)
  1. PREGABALINE [Concomitant]
     Active Substance: PREGABALIN
  2. TAPENTADOL [Suspect]
     Active Substance: TAPENTADOL
     Dosage: 350 MG, 1X/DAY
     Dates: end: 20210716
  3. TAPENTADOL [Suspect]
     Active Substance: TAPENTADOL
     Dosage: 350 MG, 1X/DAY
     Dates: start: 20210719
  4. TAPENTADOL [Suspect]
     Active Substance: TAPENTADOL
     Dosage: 250 MG, 1X/DAY
     Dates: start: 20210717, end: 20210718
  5. CO?AMOXI [Suspect]
     Active Substance: AMOXICILLIN\CLAVULANATE POTASSIUM
     Indication: PNEUMONIA ASPIRATION
     Dosage: 1.2 G, 4X/DAY
     Route: 042
     Dates: start: 20210716, end: 20210721
  6. NALOXONE [Concomitant]
     Active Substance: NALOXONE

REACTIONS (8)
  - Petit mal epilepsy [Unknown]
  - Hypoxia [Not Recovered/Not Resolved]
  - Miosis [Recovered/Resolved]
  - Renal impairment [Unknown]
  - Hepatocellular injury [Not Recovered/Not Resolved]
  - Pneumonia aspiration [Unknown]
  - Analgesic drug level increased [Unknown]
  - Confusional state [Not Recovered/Not Resolved]

NARRATIVE: CASE EVENT DATE: 202107
